FAERS Safety Report 13638903 (Version 1)
Quarter: 2017Q2

REPORT INFORMATION
  Report Type: Spontaneous
  Country: FR (occurrence: FR)
  Receive Date: 20170609
  Receipt Date: 20170609
  Transmission Date: 20170830
  Serious: Yes (Hospitalization)
  Sender: FDA-Public Use
  Company Number: FR-BAYER-2017-104637

PATIENT
  Age: 30 Year
  Sex: Female

DRUGS (1)
  1. MIRENA [Suspect]
     Active Substance: LEVONORGESTREL
     Indication: CONTRACEPTION
     Dosage: 20 MCG/24HR, CONT
     Route: 015
     Dates: start: 20120401, end: 20160419

REACTIONS (14)
  - Ovarian cyst [Recovered/Resolved]
  - Vertigo [Recovered/Resolved]
  - Irritability [Recovered/Resolved]
  - Fatigue [Recovered/Resolved]
  - Depressed mood [Recovered/Resolved]
  - Anxiety [Recovered/Resolved]
  - Pain [Recovered/Resolved]
  - Feeling abnormal [Recovered/Resolved]
  - Stress [Recovered/Resolved]
  - Weight increased [Recovered/Resolved]
  - Ovarian cystectomy [Recovered/Resolved]
  - Loss of libido [Recovered/Resolved]
  - Migraine [Recovered/Resolved]
  - Hot flush [Recovered/Resolved]
